FAERS Safety Report 18598802 (Version 1)
Quarter: 2020Q4

REPORT INFORMATION
  Report Type: Spontaneous
  Country: DE (occurrence: DE)
  Receive Date: 20201210
  Receipt Date: 20201210
  Transmission Date: 20210114
  Serious: Yes (Other)
  Sender: FDA-Public Use
  Company Number: DE-TEVA-2020-DE-1856095

PATIENT
  Age: 93 Year
  Sex: Male
  Weight: 93 kg

DRUGS (14)
  1. MEROPENEM. [Concomitant]
     Active Substance: MEROPENEM
     Dosage: DAILY DOSE: 3 G GRAM(S) EVERY DAYS 3 SEPARATED DOSES
     Route: 042
     Dates: start: 20200917, end: 20200919
  2. HCT 12,5 MG [Concomitant]
     Dosage: 1 DOSAGE FORMS DAILY;
     Dates: start: 20200919, end: 20200925
  3. ENOXAPARIN [Concomitant]
     Active Substance: ENOXAPARIN
     Dosage: 20 MILLIGRAM DAILY;
     Route: 058
     Dates: start: 20200829, end: 20200916
  4. TILIDIN COMP. 50/4 [Concomitant]
     Dosage: DAILY DOSE: 2 DF DOSAGE FORM EVERY DAYS 2 SEPARATED DOSES
     Dates: start: 20200917, end: 20200929
  5. MOVICOL [Concomitant]
     Active Substance: POLYETHYLENE GLYCOL 3350\POTASSIUM CHLORIDE\SODIUM BICARBONATE\SODIUM CHLORIDE
  6. TORASEMID [Concomitant]
     Active Substance: TORSEMIDE
     Dosage: DAILY DOSE: 80 MG MILLGRAM(S) EVERY DAYS 2 SEPARATED DOSES
     Dates: start: 20200918
  7. SUFENTANIL [Concomitant]
     Active Substance: SUFENTANIL
     Dates: start: 20200917
  8. BISOPROLOL [Concomitant]
     Active Substance: BISOPROLOL
     Dosage: 1.25 MG
     Dates: start: 20201005
  9. BENSERAZIDE/LEVODOPA 25/100 [Concomitant]
     Dosage: 6 DOSAGE FORMS DAILY;
     Dates: start: 20200229
  10. NOREPINEPHRINE. [Concomitant]
     Active Substance: NOREPINEPHRINE
  11. ESOMEPRAZOLE. [Concomitant]
     Active Substance: ESOMEPRAZOLE MAGNESIUM
     Dosage: 20 MILLIGRAM DAILY;
     Dates: start: 20200829, end: 20200925
  12. VANCOMYCIN [Suspect]
     Active Substance: VANCOMYCIN
     Indication: INTERVERTEBRAL DISCITIS
     Route: 042
     Dates: start: 20200903, end: 20201006
  13. ENOXAPARIN [Concomitant]
     Active Substance: ENOXAPARIN
     Dosage: 40 MILLIGRAM DAILY;
     Route: 058
     Dates: start: 20200917, end: 20201002
  14. AMPICILLIN/SULBACTAM 2000/1000 [Concomitant]
     Dosage: 1 DOSAGE FORMS DAILY;
     Route: 058
     Dates: start: 20200819, end: 20201008

REACTIONS (1)
  - Pancytopenia [Recovered/Resolved]

NARRATIVE: CASE EVENT DATE: 20200929
